FAERS Safety Report 16116250 (Version 1)
Quarter: 2019Q1

REPORT INFORMATION
  Report Type: Spontaneous
  Country: CN (occurrence: CN)
  Receive Date: 20190326
  Receipt Date: 20190326
  Transmission Date: 20190418
  Serious: Yes (Other)
  Sender: FDA-Public Use
  Company Number: CN-ROCHE-2286207

PATIENT
  Age: 49 Year
  Sex: Female

DRUGS (8)
  1. DOCETAXEL. [Concomitant]
     Active Substance: DOCETAXEL
     Indication: BREAST CANCER STAGE IV
     Dosage: FOR 6 CYCLES
     Route: 065
     Dates: start: 20160929, end: 20170118
  2. DOCETAXEL. [Concomitant]
     Active Substance: DOCETAXEL
     Dosage: FOR 2 CYCLES
     Route: 065
     Dates: start: 20170212, end: 20170305
  3. CARBOPLATIN. [Concomitant]
     Active Substance: CARBOPLATIN
     Indication: BREAST CANCER STAGE IV
     Dosage: FOR 6 CYCLES
     Route: 065
     Dates: start: 20160929, end: 20170118
  4. HERCEPTIN [Suspect]
     Active Substance: TRASTUZUMAB
     Dosage: FOR 2 CYCLES
     Route: 065
     Dates: start: 20170212, end: 20170305
  5. HERCEPTIN [Suspect]
     Active Substance: TRASTUZUMAB
     Dosage: MAINTENANCE TREATMENT
     Route: 065
     Dates: start: 2017
  6. HERCEPTIN [Suspect]
     Active Substance: TRASTUZUMAB
     Indication: BREAST CANCER STAGE IV
     Dosage: FOR 6 CYCLES
     Route: 065
     Dates: start: 20160929, end: 20170118
  7. XELODA [Suspect]
     Active Substance: CAPECITABINE
     Indication: BREAST CANCER STAGE IV
     Route: 065
     Dates: start: 201710
  8. LAPATINIB [Concomitant]
     Active Substance: LAPATINIB
     Indication: BREAST CANCER STAGE IV
     Route: 065
     Dates: start: 201710

REACTIONS (7)
  - Bone marrow failure [Unknown]
  - Pneumonitis [Unknown]
  - Hepatic steatosis [Unknown]
  - Renal cyst [Unknown]
  - Tonsillitis [Unknown]
  - Sinusitis [Unknown]
  - Drug resistance [Unknown]

NARRATIVE: CASE EVENT DATE: 2017
